FAERS Safety Report 9282622 (Version 4)
Quarter: 2014Q1

REPORT INFORMATION
  Report Type: Report from Study
  Country: IT (occurrence: IT)
  Receive Date: 20130510
  Receipt Date: 20140219
  Transmission Date: 20141002
  Serious: Yes (Hospitalization, Other)
  Sender: FDA-Public Use
  Company Number: PHHY2013IT046035

PATIENT
  Age: 78 Year
  Sex: Male
  Weight: 72 kg

DRUGS (4)
  1. CERTICAN [Suspect]
     Indication: PROPHYLAXIS AGAINST TRANSPLANT REJECTION
     Dosage: 1.25 MG, (0.75+ 0.50 MG PER DAY)
     Route: 048
     Dates: start: 20110720, end: 20110917
  2. CICLOSPORIN [Concomitant]
     Indication: PROPHYLAXIS AGAINST TRANSPLANT REJECTION
     Dosage: 50+ 50 MG PER DAY
     Dates: start: 20100720
  3. CICLOSPORIN [Concomitant]
     Dosage: 1 MG, PER DAY
  4. DELTACORTENE [Concomitant]
     Indication: PROPHYLAXIS AGAINST TRANSPLANT REJECTION
     Dosage: 5 MG, PER DAY
     Dates: start: 20030709

REACTIONS (9)
  - Lung infection [Recovered/Resolved]
  - Bronchopneumonia [Recovered/Resolved]
  - Pleural effusion [Recovered/Resolved]
  - Tricuspid valve incompetence [Recovered/Resolved]
  - Renal impairment [Recovered/Resolved]
  - Pericardial effusion [Recovered/Resolved]
  - Pulmonary embolism [Recovered/Resolved]
  - Deep vein thrombosis [Recovered/Resolved]
  - Pelvic venous thrombosis [Recovered/Resolved]
